FAERS Safety Report 6672831-9 (Version None)
Quarter: 2010Q2

REPORT INFORMATION
  Report Type: 
  Country: None (occurrence: None)
  Receive Date: 20100408
  Receipt Date: 20100326
  Transmission Date: 20101027
  Serious: Yes (Other)
  Sender: FDA-Public Use
  Company Number: PHHY2010CA16444

PATIENT
  Sex: Male

DRUGS (1)
  1. SANDOSTATIN LAR [Suspect]
     Indication: CARCINOID SYNDROME
     Dosage: 20 MG, EVERY 4 WEEKS
     Route: 030
     Dates: start: 20100308

REACTIONS (4)
  - ASTHENIA [None]
  - DECREASED APPETITE [None]
  - DIARRHOEA [None]
  - WEIGHT DECREASED [None]
